FAERS Safety Report 10100328 (Version 1)
Quarter: 2014Q2

REPORT INFORMATION
  Report Type: Spontaneous
  Country: US (occurrence: US)
  Receive Date: 20140423
  Receipt Date: 20140423
  Transmission Date: 20141212
  Serious: No
  Sender: FDA-Public Use
  Company Number: US-BAYER-2014-058817

PATIENT
  Age: 20 Year
  Sex: Female

DRUGS (2)
  1. MIRENA [Suspect]
     Indication: CONTRACEPTION
     Dosage: 20 MCG/24HR, CONT
     Route: 015
     Dates: start: 201401
  2. MIRENA [Suspect]
     Indication: MENORRHAGIA

REACTIONS (5)
  - Hypomenorrhoea [None]
  - Fatigue [None]
  - Asthenia [None]
  - Vomiting [None]
  - Menstruation delayed [None]
